FAERS Safety Report 7189352-X (Version None)
Quarter: 2010Q4

REPORT INFORMATION
  Report Type: 
  Country: None (occurrence: None)
  Receive Date: 20101222
  Receipt Date: 20100823
  Transmission Date: 20110411
  Serious: No
  Sender: FDA-Public Use
  Company Number: US-AMGEN-TCS422332

PATIENT

DRUGS (7)
  1. ENBREL [Suspect]
     Indication: RHEUMATOID ARTHRITIS
     Dosage: 50 MG, QWK
     Route: 058
     Dates: start: 20100408
  2. SULFASALAZINE [Concomitant]
  3. HYDROXYCHLOROQUINE [Concomitant]
  4. CALCIUM/VITAMIN D [Concomitant]
  5. FOLIC ACID [Concomitant]
  6. TRAMADOL [Concomitant]
  7. ACTONEL [Concomitant]

REACTIONS (6)
  - ERYTHEMA [None]
  - INJECTION SITE ERYTHEMA [None]
  - INJECTION SITE PRURITUS [None]
  - INJECTION SITE REACTION [None]
  - INJECTION SITE SWELLING [None]
  - RASH PRURITIC [None]
